FAERS Safety Report 20485342 (Version 3)
Quarter: 2024Q1

REPORT INFORMATION
  Report Type: Spontaneous
  Country: US (occurrence: US)
  Receive Date: 20220217
  Receipt Date: 20240202
  Transmission Date: 20240410
  Serious: No
  Sender: FDA-Public Use
  Company Number: US-Ipsen Biopharmaceuticals, Inc.-2022-03697

PATIENT
  Sex: Female

DRUGS (1)
  1. SOMATULINE DEPOT [Suspect]
     Active Substance: LANREOTIDE ACETATE
     Indication: Acromegaly
     Dosage: 120MG EVERY 28 DAYS
     Route: 058
     Dates: start: 20111013

REACTIONS (14)
  - Impulse-control disorder [Unknown]
  - Hypoaesthesia [Unknown]
  - Hormone level abnormal [Unknown]
  - Insomnia [Unknown]
  - Headache [Not Recovered/Not Resolved]
  - Product dose omission issue [Unknown]
  - Bone pain [Not Recovered/Not Resolved]
  - Glossitis [Not Recovered/Not Resolved]
  - Inflammation [Not Recovered/Not Resolved]
  - Limb discomfort [Not Recovered/Not Resolved]
  - Decreased appetite [Not Recovered/Not Resolved]
  - Product dose omission issue [Unknown]
  - Product supply issue [Unknown]
  - Drug ineffective [Unknown]
